FAERS Safety Report 6902471-5 (Version None)
Quarter: 2010Q3

REPORT INFORMATION
  Report Type: 
  Country: None (occurrence: None)
  Receive Date: 20100802
  Receipt Date: 20100802
  Transmission Date: 20110219
  Serious: Yes (Hospitalization)
  Sender: FDA-Public Use
  Company Number: None

PATIENT
  Sex: Male
  Weight: 110.9 kg

DRUGS (9)
  1. BEXXAR [Suspect]
     Indication: MULTIPLE MYELOMA
     Dosage: NA X1 IV
     Route: 042
     Dates: start: 20100406
  2. BEXXAR [Suspect]
     Dosage: 65 CGY X1 IV
     Route: 042
     Dates: start: 20100414
  3. VICODIN [Concomitant]
  4. OXYCONTIN [Concomitant]
  5. VALTREX [Concomitant]
  6. FOLIC ACID [Suspect]
  7. ALPHA LIPOIC ACID [Suspect]
  8. L-CARNITINE [Concomitant]
  9. SSKI [Concomitant]

REACTIONS (2)
  - HEADACHE [None]
  - VIITH NERVE PARALYSIS [None]
